FAERS Safety Report 13968345 (Version 1)
Quarter: 2017Q3

REPORT INFORMATION
  Report Type: Spontaneous
  Country: US (occurrence: US)
  Receive Date: 20170914
  Receipt Date: 20170914
  Transmission Date: 20171128
  Serious: No
  Sender: FDA-Public Use
  Company Number: US-PERRIGO-17US025012

PATIENT

DRUGS (1)
  1. MINOXIDIL. [Suspect]
     Active Substance: MINOXIDIL
     Indication: HAIR GROWTH RATE ABNORMAL
     Dosage: UNKNOWN, OFF AND ON
     Route: 061

REACTIONS (1)
  - Off label use [Unknown]
